FAERS Safety Report 8803987 (Version 1)
Quarter: 2012Q4

REPORT INFORMATION
  Report Type: 
  Country: US (occurrence: US)
  Receive Date: 20120924
  Receipt Date: 20120924
  Transmission Date: 20130627
  Serious: No
  Sender: FDA-Public Use
  Company Number: US-PFIZER INC-2012235060

PATIENT
  Age: 69 Year
  Sex: Male

DRUGS (2)
  1. NICOTROL INHALER [Suspect]
     Indication: SMOKING CESSATION THERAPY
     Dosage: UNK, as needed
     Route: 048
  2. NICOTROL INHALER [Suspect]
     Dosage: UNK, as needed
     Route: 048
     Dates: end: 201209

REACTIONS (1)
  - Oral discomfort [Unknown]
